FAERS Safety Report 4698549-X (Version None)
Quarter: 2005Q2

REPORT INFORMATION
  Report Type: 
  Country: None (occurrence: None)
  Receive Date: 20050622
  Receipt Date: 20050614
  Transmission Date: 20051028
  Serious: Yes (Hospitalization, Other)
  Sender: FDA-Public Use
  Company Number: 2005078939

PATIENT
  Age: 77 Year
  Sex: Male
  Weight: 79.3795 kg

DRUGS (5)
  1. CELEBREX [Suspect]
     Indication: OSTEOARTHRITIS
     Dosage: 200 MG (200 MG, 1 IN 1 D); ORAL
     Route: 048
  2. ACCUPRIL [Concomitant]
  3. PLENDIL [Concomitant]
  4. HYDROCHLOROTHIAZIDE [Concomitant]
  5. TOPROL (METOPROLOL) [Concomitant]

REACTIONS (6)
  - ARTHRALGIA [None]
  - CHEST DISCOMFORT [None]
  - CORONARY ARTERY OCCLUSION [None]
  - DYSPNOEA [None]
  - HIP ARTHROPLASTY [None]
  - JOINT RANGE OF MOTION DECREASED [None]
